FAERS Safety Report 8665770 (Version 3)
Quarter: 2013Q1

REPORT INFORMATION
  Report Type: Spontaneous
  Country: BR (occurrence: BR)
  Receive Date: 20120716
  Receipt Date: 20130111
  Transmission Date: 20140127
  Serious: Yes (Death, Hospitalization)
  Sender: FDA-Public Use
  Company Number: PHHY2012BR060563

PATIENT
  Sex: Female

DRUGS (3)
  1. STALEVO [Suspect]
     Indication: PARKINSON^S DISEASE
     Dosage: 50 MG, AT 3 DF, DAILY
     Route: 048
  2. STALEVO [Suspect]
     Dosage: 100 MG, AT 3 DF, DAILY
     Route: 048
  3. STALEVO [Suspect]
     Dosage: 150 MG, AT  2 DF, DAILY
     Route: 048

REACTIONS (4)
  - Pneumonia [Fatal]
  - Dyspnoea [Fatal]
  - Coma [Fatal]
  - Cardiac arrest [Fatal]
